FAERS Safety Report 4404978-1 (Version None)
Quarter: 2004Q2

REPORT INFORMATION
  Report Type: 
  Country: None (occurrence: None)
  Receive Date: 20040618
  Receipt Date: 20040317
  Transmission Date: 20050107
  Serious: No
  Sender: FDA-Public Use
  Company Number: US-JNJFOC-20040304033

PATIENT
  Age: 40 Year
  Sex: Female
  Weight: 88.4514 kg

DRUGS (5)
  1. ORTHO EVRA [Suspect]
     Indication: CONTRACEPTION
     Dosage: 1 DOSES 3 IN 4 WEEK TRANSDERMAL
     Route: 062
     Dates: start: 20040301
  2. ORAL CONTRACEPTIVE NOS (ORAL CONTRACEPTIVE NOS) TABLETS [Suspect]
     Indication: CONTRACEPTION
     Dosage: 1 DOSE(S), 1 IN 1 DAY, ORAL
     Route: 048
  3. NEURONTIN [Concomitant]
  4. ELAVIL [Concomitant]
  5. IBUPROFEN [Concomitant]

REACTIONS (1)
  - MENORRHAGIA [None]
